FAERS Safety Report 22087018 (Version 2)
Quarter: 2023Q1

REPORT INFORMATION
  Report Type: Spontaneous
  Country: US (occurrence: None)
  Receive Date: 20230313
  Receipt Date: 20230331
  Transmission Date: 20230418
  Serious: No
  Sender: FDA-Public Use
  Company Number: 2023A047930

PATIENT
  Sex: Female

DRUGS (1)
  1. BREZTRI [Suspect]
     Active Substance: BUDESONIDE\FORMOTEROL\GLYCOPYRROLATE
     Indication: Product used for unknown indication
     Dosage: 160UG/INHAL TWO TIMES A DAY
     Route: 055

REACTIONS (4)
  - Arthritis [Unknown]
  - Device use issue [Unknown]
  - Device malfunction [Unknown]
  - Product label issue [Unknown]
